FAERS Safety Report 12507942 (Version 3)
Quarter: 2021Q2

REPORT INFORMATION
  Report Type: Other
  Country: DE (occurrence: DE)
  Receive Date: 20160629
  Receipt Date: 20210526
  Transmission Date: 20210716
  Serious: Yes (Other)
  Sender: FDA-Public Use
  Company Number: DE-ROCHE-1784463

PATIENT
  Age: 59 Year
  Sex: Female

DRUGS (2)
  1. PEGINTERFERON ALFA?2A. [Suspect]
     Active Substance: PEGINTERFERON ALFA-2A
     Indication: CHRONIC HEPATITIS C
     Route: 065
  2. RIBAVIRIN. [Suspect]
     Active Substance: RIBAVIRIN
     Indication: CHRONIC HEPATITIS C
     Route: 065

REACTIONS (15)
  - Depression [Recovered/Resolved]
  - Thrombocytopenia [Not Recovered/Not Resolved]
  - Mood swings [Not Recovered/Not Resolved]
  - Pruritus [Recovered/Resolved]
  - Injection site rash [Recovered/Resolved]
  - Herpes virus infection [Not Recovered/Not Resolved]
  - Affect lability [Not Recovered/Not Resolved]
  - Dyspnoea [Recovered/Resolved]
  - Chest discomfort [Not Recovered/Not Resolved]
  - Joint swelling [Recovered/Resolved]
  - Headache [Not Recovered/Not Resolved]
  - Haemolytic anaemia [Not Recovered/Not Resolved]
  - Sleep disorder [Not Recovered/Not Resolved]
  - Food craving [Not Recovered/Not Resolved]
  - Alopecia [Recovered/Resolved]

NARRATIVE: CASE EVENT DATE: 20120107
